FAERS Safety Report 10220225 (Version 1)
Quarter: 2014Q2

REPORT INFORMATION
  Report Type: Spontaneous
  Country: US (occurrence: US)
  Receive Date: 20140606
  Receipt Date: 20140606
  Transmission Date: 20141212
  Serious: Yes (Hospitalization, Other)
  Sender: FDA-Public Use
  Company Number: US-AMGEN INC.-USASP2014041542

PATIENT
  Age: 55 Year
  Sex: Male
  Weight: 112.47 kg

DRUGS (11)
  1. PROCRIT [Suspect]
     Indication: ANAEMIA
     Dosage: 20000 UNIT, WEEKLY
     Route: 065
  2. BACTRIM [Concomitant]
     Dosage: UNK EVERY OTHER DAY
  3. FOLIC ACID [Concomitant]
     Indication: PROPHYLAXIS
     Dosage: 1 MG, UNK
  4. QUINAPRIL [Concomitant]
     Dosage: 10 MG, UNK
  5. LIPITOR [Concomitant]
     Dosage: 80 MG, UNK
  6. PANTOPRAZOLE [Concomitant]
     Dosage: 40 MG, UNK
     Dates: start: 200101
  7. PLAVIX [Concomitant]
     Indication: PROPHYLAXIS
     Dosage: 75 MG, DAILY
     Route: 048
     Dates: start: 2009
  8. EPLERENONE [Concomitant]
     Dosage: 25 MG, DAILY
     Route: 048
     Dates: start: 2011
  9. GABAPENTIN [Concomitant]
     Indication: NEUROPATHY PERIPHERAL
     Dosage: 300 MG, TWICE DAILY
     Route: 048
     Dates: start: 2013
  10. VERAPAMIL [Concomitant]
     Indication: BLOOD PRESSURE
     Dosage: 120 MG, TWICE DAILY
     Route: 048
  11. SYNTHROID [Concomitant]
     Indication: HYPOTHYROIDISM
     Dosage: 50 MG, DAILY
     Route: 048

REACTIONS (2)
  - Renal transplant [Unknown]
  - Adverse event [Unknown]
